FAERS Safety Report 24609312 (Version 2)
Quarter: 2024Q4

REPORT INFORMATION
  Report Type: Spontaneous
  Country: US (occurrence: US)
  Receive Date: 20241112
  Receipt Date: 20241118
  Transmission Date: 20250115
  Serious: No
  Sender: ROCHE
  Company Number: US-ROCHE-10000125483

PATIENT
  Age: 81 Year
  Sex: Male
  Weight: 111.13 kg

DRUGS (6)
  1. VABYSMO [Suspect]
     Active Substance: FARICIMAB-SVOA
     Indication: Neovascular age-related macular degeneration
     Dosage: LEFT EYE
     Route: 050
     Dates: start: 20241016
  2. AVASTIN [Suspect]
     Active Substance: BEVACIZUMAB
     Indication: Neovascular age-related macular degeneration
     Dosage: RIGHT EYE
     Route: 050
  3. METFORMIN [Concomitant]
     Active Substance: METFORMIN HYDROCHLORIDE
  4. GLIPIZIDE [Concomitant]
     Active Substance: GLIPIZIDE
     Dosage: IN THE MORNING
  5. GLIPIZIDE [Concomitant]
     Active Substance: GLIPIZIDE
     Dosage: IN THE MORNING
  6. RYBELSUS [Concomitant]
     Active Substance: SEMAGLUTIDE
     Dosage: IN THE MORNING

REACTIONS (2)
  - Off label use [Unknown]
  - Blood glucose increased [Not Recovered/Not Resolved]

NARRATIVE: CASE EVENT DATE: 20241016
